FAERS Safety Report 4999705-3 (Version None)
Quarter: 2006Q2

REPORT INFORMATION
  Report Type: 
  Country: None (occurrence: None)
  Receive Date: 20060511
  Receipt Date: 20051220
  Transmission Date: 20061013
  Serious: Yes (Hospitalization, Disabling, Other)
  Sender: FDA-Public Use
  Company Number: US-MERCK-0512USA03273

PATIENT
  Age: 46 Year
  Sex: Female
  Weight: 55 kg

DRUGS (5)
  1. VIOXX [Suspect]
     Indication: ARTHRITIS
     Route: 048
     Dates: start: 20000718, end: 20031201
  2. ASPIRIN [Concomitant]
     Indication: CARDIOVASCULAR EVENT PROPHYLAXIS
     Route: 065
     Dates: start: 20000101, end: 20050101
  3. PREMARIN [Concomitant]
     Indication: HORMONE REPLACEMENT THERAPY
     Route: 065
     Dates: start: 19810101
  4. VERAPAMIL [Concomitant]
     Indication: HYPERTENSION
     Route: 065
  5. IMITREX [Concomitant]
     Indication: MIGRAINE
     Route: 065
     Dates: start: 20000101, end: 20000101

REACTIONS (23)
  - ADVERSE DRUG REACTION [None]
  - AMNESIA [None]
  - ANXIETY [None]
  - ATRIOVENTRICULAR BLOCK [None]
  - BLOOD CHOLESTEROL INCREASED [None]
  - BRONCHITIS [None]
  - CARDIAC ARREST [None]
  - CARDIAC MURMUR [None]
  - CARDIOVASCULAR DISORDER [None]
  - CAROTID ARTERY STENOSIS [None]
  - CEREBROVASCULAR ACCIDENT [None]
  - CHRONIC OBSTRUCTIVE PULMONARY DISEASE [None]
  - CORONARY ARTERY DISEASE [None]
  - DEEP VEIN THROMBOSIS [None]
  - DEPRESSION [None]
  - DYSPNOEA [None]
  - MIGRAINE [None]
  - MITRAL VALVE PROLAPSE [None]
  - OSTEOARTHRITIS [None]
  - POISONING [None]
  - POST-TRAUMATIC STRESS DISORDER [None]
  - RENAL CYST [None]
  - TRANSIENT ISCHAEMIC ATTACK [None]
